FAERS Safety Report 4734428-7 (Version None)
Quarter: 2005Q3

REPORT INFORMATION
  Report Type: 
  Country: None (occurrence: None)
  Receive Date: 20050804
  Receipt Date: 20041126
  Transmission Date: 20060218
  Serious: Yes (Life-Threatening, Hospitalization)
  Sender: FDA-Public Use
  Company Number: CZ-ROCHE-411469

PATIENT
  Age: 50 Year
  Sex: Male
  Weight: 65.1 kg

DRUGS (10)
  1. DACLIZUMAB [Suspect]
     Route: 042
     Dates: start: 20041124
  2. DACLIZUMAB [Suspect]
     Route: 042
     Dates: end: 20050120
  3. MYCOPHENOLATE MOFETIL [Suspect]
     Route: 048
  4. MYCOPHENOLATE MOFETIL [Suspect]
     Route: 048
  5. SIROLIMUS [Suspect]
     Route: 048
     Dates: start: 20041127
  6. SIROLIMUS [Suspect]
     Route: 048
     Dates: start: 20041201
  7. SIROLIMUS [Suspect]
     Route: 048
     Dates: start: 20050617
  8. PREDNISONUM [Suspect]
     Route: 048
     Dates: start: 20041127
  9. PREDNISONUM [Suspect]
     Route: 048
     Dates: start: 20041221
  10. PREDNISONUM [Suspect]
     Route: 048

REACTIONS (2)
  - PNEUMONIA [None]
  - TONGUE NEOPLASM MALIGNANT STAGE UNSPECIFIED [None]
